FAERS Safety Report 7798513-8 (Version None)
Quarter: 2011Q4

REPORT INFORMATION
  Report Type: 
  Country: None (occurrence: None)
  Receive Date: 20111005
  Receipt Date: 20110926
  Transmission Date: 20120403
  Serious: Yes (Hospitalization, Other)
  Sender: FDA-Public Use
  Company Number: US-ASTRAZENECA-2010SE42799

PATIENT
  Age: 78 Year
  Sex: Female

DRUGS (10)
  1. CRESTOR [Suspect]
     Route: 048
  2. ARIMIDEX [Suspect]
     Route: 048
  3. COREG [Concomitant]
  4. CARVEDILOL [Concomitant]
  5. PLAVIX [Concomitant]
  6. VASOTEC [Concomitant]
  7. TAMOXIFEN CITRATE [Suspect]
     Route: 048
  8. ENALAPRIL MALEATE [Concomitant]
  9. ATENOLOL [Suspect]
     Route: 065
  10. ASPIRIN [Concomitant]

REACTIONS (9)
  - MYOCARDIAL INFARCTION [None]
  - BREAST CANCER RECURRENT [None]
  - CORONARY ARTERY OCCLUSION [None]
  - ADHESION [None]
  - LIMB DISCOMFORT [None]
  - NEOPLASM MALIGNANT [None]
  - BREAST CANCER FEMALE [None]
  - ANGIOPATHY [None]
  - ARTERIAL OCCLUSIVE DISEASE [None]
